FAERS Safety Report 4827529-6 (Version None)
Quarter: 2005Q4

REPORT INFORMATION
  Report Type: 
  Country: None (occurrence: None)
  Receive Date: 20051114
  Receipt Date: 20030709
  Transmission Date: 20060501
  Serious: Yes (Death, Hospitalization, Other)
  Sender: FDA-Public Use
  Company Number: PHBS2003JP07309

PATIENT
  Age: 81 Year
  Sex: Male

DRUGS (12)
  1. PREDONINE [Concomitant]
     Dosage: 10 MG/DAY
     Route: 048
     Dates: start: 20030226, end: 20030320
  2. PRIMPERAN INJ [Concomitant]
     Route: 048
     Dates: start: 20030226, end: 20030320
  3. FENTANYL [Concomitant]
     Dosage: 2.5 MG/D
     Route: 061
     Dates: start: 20030226, end: 20030313
  4. OMEPRAL [Concomitant]
     Route: 048
     Dates: start: 20030306, end: 20030316
  5. MOBIC [Concomitant]
     Dosage: 10 MG/D
     Route: 048
     Dates: start: 20030306, end: 20030320
  6. GLEEVEC [Suspect]
     Indication: BLAST CRISIS IN MYELOGENOUS LEUKAEMIA
     Dosage: 100-400 MG/DAY
     Route: 048
     Dates: start: 20030226, end: 20030303
  7. GLEEVEC [Suspect]
     Dosage: 100 MG/DAY
     Route: 048
     Dates: start: 20040108, end: 20040114
  8. GLEEVEC [Suspect]
     Dosage: 200 MG/DAY
     Route: 048
     Dates: start: 20040115, end: 20040118
  9. GLEEVEC [Suspect]
     Dosage: 400 MG/DAY
     Route: 048
     Dates: start: 20040119, end: 20040124
  10. GLEEVEC [Suspect]
     Dosage: 600 MG/DAY
     Route: 048
     Dates: start: 20030304, end: 20030603
  11. HYDREA [Suspect]
     Dosage: UNK, UNK
     Route: 048
     Dates: end: 20040107
  12. HYDREA [Suspect]
     Dosage: UNK, UNK
     Route: 048
     Dates: start: 20040108

REACTIONS (15)
  - CEREBRAL HAEMORRHAGE [None]
  - COMPLETED SUICIDE [None]
  - DECREASED APPETITE [None]
  - DIZZINESS [None]
  - FALL [None]
  - FATIGUE [None]
  - HEAD INJURY [None]
  - INTERSTITIAL LUNG DISEASE [None]
  - NAUSEA [None]
  - OEDEMA PERIPHERAL [None]
  - RASH [None]
  - RASH ERYTHEMATOUS [None]
  - SKIN DISCOLOURATION [None]
  - SKIN EXFOLIATION [None]
  - SUBARACHNOID HAEMORRHAGE [None]
